FAERS Safety Report 6438423-1 (Version None)
Quarter: 2009Q4

REPORT INFORMATION
  Report Type: 
  Country: None (occurrence: None)
  Receive Date: 20091112
  Receipt Date: 20091109
  Transmission Date: 20100525
  Serious: Yes (Hospitalization, Other)
  Sender: FDA-Public Use
  Company Number: BR-ABBOTT-09P-020-0606261-00

PATIENT
  Sex: Female
  Weight: 40 kg

DRUGS (2)
  1. HUMIRA [Suspect]
     Indication: RHEUMATOID ARTHRITIS
     Dosage: 1 INJECTION
     Route: 058
     Dates: start: 20070101, end: 20090701
  2. PREDNISONE 7.5 MG + PIROXICAM 20 MG + RANITIDINE 150 MG (FORMULE) [Concomitant]
     Indication: RHEUMATOID ARTHRITIS
     Dosage: 7.5 MG/20 MG/150 MG
     Route: 048
     Dates: start: 20030101

REACTIONS (7)
  - ASTHENIA [None]
  - DEPRESSION [None]
  - DYSPEPSIA [None]
  - GASTRIC ULCER HELICOBACTER [None]
  - LIVER DISORDER [None]
  - PAIN [None]
  - VOMITING [None]
